FAERS Safety Report 7198403-8 (Version None)
Quarter: 2010Q4

REPORT INFORMATION
  Report Type: 
  Country: None (occurrence: None)
  Receive Date: 20101213
  Receipt Date: 20101202
  Transmission Date: 20110411
  Serious: Yes (Hospitalization, Other)
  Sender: FDA-Public Use
  Company Number: 2010JP006825

PATIENT
  Age: 3 Year
  Sex: Male

DRUGS (10)
  1. PROGRAF [Suspect]
     Indication: LIVER TRANSPLANT
     Dosage: ORAL
     Route: 048
  2. ORAP [Suspect]
     Indication: RESTLESSNESS
     Dosage: 1 MG, UID/QD, ORAL; ORAL
     Route: 048
     Dates: start: 20100329, end: 20100406
  3. ORAP [Suspect]
     Indication: RESTLESSNESS
     Dosage: 1 MG, UID/QD, ORAL; ORAL
     Route: 048
     Dates: start: 20100407, end: 20100502
  4. CONTOMIN (CHLORPROMAZINE HYDROCHLORIDE) INJECTION [Suspect]
     Indication: RESTLESSNESS
     Dosage: 3 MG, UID/QD, INTRAMUSCULAR
     Route: 030
     Dates: start: 20100328, end: 20100329
  5. CYCLOSPORINE [Suspect]
     Indication: LIVER TRANSPLANT
     Dosage: ORAL
     Route: 048
     Dates: start: 20100326
  6. MIDAZOLAM HCL [Concomitant]
  7. PRECEDEX (DEXMEDETOMIDINE HYDROCHLORIDE) INJECTION [Concomitant]
  8. ZONISAMIDE (ZONISAMIDE) PER ORAL NOS [Concomitant]
  9. SOL-MELCORT (METHYLPREDNISOLONE SODIUM SUCCINATE) INJECTION [Concomitant]
  10. NICARDIPINE (NICARDIPINE HYDROCHLORIDE) INJECTION [Concomitant]

REACTIONS (3)
  - CONVULSION [None]
  - PARKINSONISM [None]
  - TOXIC ENCEPHALOPATHY [None]
